FAERS Safety Report 9438871 (Version 3)
Quarter: 2013Q3

REPORT INFORMATION
  Report Type: Report from Study
  Country: IE (occurrence: IE)
  Receive Date: 20130802
  Receipt Date: 20130930
  Transmission Date: 20140515
  Serious: Yes (Hospitalization, Other)
  Sender: FDA-Public Use
  Company Number: IE-US-EMD SERONO, INC.-7226640

PATIENT
  Age: 68 Year
  Sex: Male

DRUGS (4)
  1. REBIF [Suspect]
     Indication: RELAPSING-REMITTING MULTIPLE SCLEROSIS
     Route: 058
     Dates: start: 20090114, end: 20130715
  2. PAROXETINE [Concomitant]
     Indication: DEPRESSION
     Route: 048
  3. PHENYTOIN [Concomitant]
     Indication: EPILEPSY
     Route: 048
  4. LYRICA [Concomitant]
     Indication: EPILEPSY
     Route: 048

REACTIONS (2)
  - Extragonadal primary embryonal carcinoma [Recovering/Resolving]
  - Pulmonary embolism [Not Recovered/Not Resolved]
